FAERS Safety Report 22650594 (Version 1)
Quarter: 2023Q2

REPORT INFORMATION
  Report Type: Spontaneous
  Country: US (occurrence: None)
  Receive Date: 20230627
  Receipt Date: 20230627
  Transmission Date: 20230722
  Serious: Yes (Hospitalization)
  Sender: FDA-Public Use
  Company Number: None

PATIENT
  Sex: Female

DRUGS (2)
  1. ENTECAVIR [Suspect]
     Active Substance: ENTECAVIR
     Indication: Plasma cell myeloma
     Dosage: 0.5MG 1 TIME A DAY BY MOUTH?
     Route: 048
     Dates: start: 202212
  2. THALOMID [Concomitant]
     Active Substance: THALIDOMIDE

REACTIONS (3)
  - Mouth haemorrhage [None]
  - Palpitations [None]
  - Therapy interrupted [None]
